FAERS Safety Report 24854077 (Version 3)
Quarter: 2025Q1

REPORT INFORMATION
  Report Type: Spontaneous
  Country: US (occurrence: US)
  Receive Date: 20250117
  Receipt Date: 20250210
  Transmission Date: 20250409
  Serious: No
  Sender: HETERO
  Company Number: US-HETERO-HET2025US00090

PATIENT
  Sex: Male
  Weight: 77.1 kg

DRUGS (1)
  1. OSELTAMIVIR [Suspect]
     Active Substance: OSELTAMIVIR
     Indication: Product used for unknown indication
     Route: 048
     Dates: start: 20250104, end: 20250106

REACTIONS (2)
  - Wheezing [Recovered/Resolved]
  - Influenza [Recovered/Resolved]
